FAERS Safety Report 8265139-1 (Version None)
Quarter: 2012Q2

REPORT INFORMATION
  Report Type: 
  Country: None (occurrence: None)
  Receive Date: 20120406
  Receipt Date: 20120330
  Transmission Date: 20120825
  Serious: Yes (Death)
  Sender: FDA-Public Use
  Company Number: US-CELGENEUS-163-21880-11071440

PATIENT
  Sex: Male
  Weight: 88.076 kg

DRUGS (9)
  1. REVLIMID [Suspect]
     Dosage: 10 MILLIGRAM
     Route: 048
     Dates: start: 20110531, end: 20110926
  2. POTASSIUM [Concomitant]
     Route: 048
  3. REVLIMID [Suspect]
     Indication: MULTIPLE MYELOMA
     Dosage: 25 MILLIGRAM
     Route: 048
     Dates: start: 20100901
  4. ACYCLOVIR [Concomitant]
     Dosage: 800 MILLIGRAM
     Route: 065
     Dates: start: 20111102
  5. BUPROPION HYDROCHLORIDE [Concomitant]
     Dosage: 150 MILLIGRAM
     Route: 065
     Dates: start: 20100101
  6. ZOMETA [Concomitant]
     Dosage: 4 MILLIGRAM
     Route: 065
     Dates: start: 20110701
  7. GABAPENTIN [Concomitant]
     Dosage: 300 MILLIGRAM
     Route: 065
     Dates: start: 20100101
  8. NEFAZODONE HCL [Concomitant]
     Dosage: 250 MILLIGRAM
     Route: 065
     Dates: start: 20100101
  9. PROCRIT [Concomitant]
     Dosage: 40000 IU (INTERNATIONAL UNIT)
     Route: 065
     Dates: start: 20110901

REACTIONS (4)
  - PLATELET COUNT DECREASED [None]
  - MULTIPLE MYELOMA [None]
  - HAEMOGLOBIN DECREASED [None]
  - RASH PRURITIC [None]
